FAERS Safety Report 19237347 (Version 1)
Quarter: 2021Q2

REPORT INFORMATION
  Report Type: Spontaneous
  Country: US (occurrence: US)
  Receive Date: 20210510
  Receipt Date: 20210510
  Transmission Date: 20210717
  Serious: Yes (Hospitalization)
  Sender: FDA-Public Use
  Company Number: None

PATIENT
  Age: 50 Year
  Sex: Male
  Weight: 117 kg

DRUGS (3)
  1. SODIUM CHLORIDE 0.9 % INFUSION (IV) [Concomitant]
     Dates: start: 20210424, end: 20210424
  2. IMDEVIMAB. [Suspect]
     Active Substance: IMDEVIMAB
     Indication: COVID-19
     Dosage: ?          OTHER FREQUENCY:ONCE;OTHER ROUTE:IVPB?
     Dates: start: 20210424, end: 20210424
  3. CASIRIVIMAB. [Suspect]
     Active Substance: CASIRIVIMAB
     Indication: COVID-19
     Dosage: ?          OTHER FREQUENCY:ONCE;OTHER ROUTE:IVPB?
     Dates: start: 20210424, end: 20210424

REACTIONS (3)
  - COVID-19 pneumonia [None]
  - Blood creatinine increased [None]
  - Blood creatine phosphokinase increased [None]

NARRATIVE: CASE EVENT DATE: 20210425
